FAERS Safety Report 8762836 (Version 2)
Quarter: 2012Q4

REPORT INFORMATION
  Report Type: 
  Country: FR (occurrence: FR)
  Receive Date: 20120830
  Receipt Date: 20121210
  Transmission Date: 20130627
  Serious: Yes (Other)
  Sender: FDA-Public Use
  Company Number: FR-UCBSA-063475

PATIENT
  Age: 6 Year
  Sex: Male

DRUGS (1)
  1. XYZALL [Suspect]
     Route: 048
     Dates: start: 2009

REACTIONS (2)
  - Acquired Von Willebrand^s disease [Unknown]
  - Epistaxis [Unknown]
